FAERS Safety Report 4335847-3 (Version None)
Quarter: 2004Q2

REPORT INFORMATION
  Report Type: 
  Country: None (occurrence: None)
  Receive Date: 20040405
  Receipt Date: 20040323
  Transmission Date: 20050107
  Serious: Yes (Hospitalization)
  Sender: FDA-Public Use
  Company Number: 04P-056-0254513-00

PATIENT
  Age: 64 Year
  Sex: Female

DRUGS (6)
  1. TRICOR [Suspect]
     Dosage: 200 MG, 1 IN 1 D, ORAL
     Route: 048
     Dates: start: 19980101
  2. SIMVASTATIN [Concomitant]
  3. CARBAMAZEPINE [Concomitant]
  4. BISOPROLOL [Concomitant]
  5. OXAZEPAM [Concomitant]
  6. PAROXETINE HCL [Concomitant]

REACTIONS (12)
  - CARDIAC ARREST [None]
  - CHOLELITHIASIS [None]
  - DISSEMINATED INTRAVASCULAR COAGULATION [None]
  - GALLBLADDER DISORDER [None]
  - GENERAL PHYSICAL CONDITION ABNORMAL [None]
  - HEPATITIS [None]
  - ISCHAEMIC HEPATITIS [None]
  - PANCREATIC DISORDER [None]
  - PULMONARY EMBOLISM [None]
  - RENAL DISORDER [None]
  - SHOCK [None]
  - VOMITING [None]
